FAERS Safety Report 4262952-2 (Version None)
Quarter: 2004Q1

REPORT INFORMATION
  Report Type: 
  Country: None (occurrence: None)
  Receive Date: 20040102
  Receipt Date: 20040102
  Transmission Date: 20041129
  Serious: Yes (Hospitalization)
  Sender: FDA-Public Use
  Company Number: None

PATIENT
  Sex: Male
  Weight: 92 kg

DRUGS (3)
  1. LORAZEPAM [Suspect]
     Indication: AGITATION
     Dosage: VARIOUS-RECEIVED PO 20 MG OVER 48 H AND MOSTLY AT 2 MG Q6 H PRN
     Route: 048
  2. LORAZEPAM [Suspect]
     Indication: ALCOHOL WITHDRAWAL SYNDROME
     Dosage: VARIOUS-RECEIVED PO 20 MG OVER 48 H AND MOSTLY AT 2 MG Q6 H PRN
     Route: 048
  3. PROMETHAZINE [Concomitant]

REACTIONS (2)
  - ACIDOSIS [None]
  - RESPIRATORY DEPRESSION [None]
